FAERS Safety Report 8303695 (Version 4)
Quarter: 2014Q1

REPORT INFORMATION
  Report Type: Report from Study
  Country: DE (occurrence: DE)
  Receive Date: 20111220
  Receipt Date: 20140317
  Transmission Date: 20141002
  Serious: Yes (Death, Hospitalization)
  Sender: FDA-Public Use
  Company Number: DE-ROCHE-1023339

PATIENT
  Age: 64 Year
  Sex: Female
  Weight: 65 kg

DRUGS (12)
  1. BEVACIZUMAB [Suspect]
     Indication: BREAST CANCER
     Route: 042
     Dates: start: 20111012, end: 20111023
  2. BEVACIZUMAB [Suspect]
     Route: 042
     Dates: start: 20111012, end: 20111012
  3. BEVACIZUMAB [Suspect]
     Route: 042
     Dates: start: 20111123, end: 20111123
  4. UNACID [Suspect]
     Indication: OSTEONECROSIS
     Route: 065
     Dates: start: 20111204, end: 20111209
  5. PACLITAXEL [Concomitant]
     Indication: BREAST CANCER
     Route: 065
     Dates: start: 20110928
  6. PACLITAXEL [Concomitant]
     Route: 065
     Dates: start: 20111005
  7. PACLITAXEL [Concomitant]
     Route: 065
     Dates: start: 20111012
  8. PACLITAXEL [Concomitant]
     Route: 065
     Dates: start: 20111026
  9. PACLITAXEL [Concomitant]
     Route: 065
     Dates: start: 20111102
  10. PACLITAXEL [Concomitant]
     Route: 065
     Dates: start: 20111109
  11. PACLITAXEL [Concomitant]
     Route: 065
     Dates: start: 20111123
  12. PACLITAXEL [Concomitant]
     Route: 065
     Dates: start: 20111130

REACTIONS (3)
  - Malignant neoplasm progression [Fatal]
  - Metastases to liver [Fatal]
  - Osteonecrosis of jaw [Not Recovered/Not Resolved]
